FAERS Safety Report 23277004 (Version 1)
Quarter: 2023Q4

REPORT INFORMATION
  Report Type: Spontaneous
  Country: US (occurrence: None)
  Receive Date: 20231206
  Receipt Date: 20231206
  Transmission Date: 20240110
  Serious: Yes (Other)
  Sender: FDA-Public Use
  Company Number: None

PATIENT
  Sex: Female

DRUGS (1)
  1. MSM EYE DROPS 15% [Suspect]
     Active Substance: DIMETHYL SULFONE
     Dosage: FREQUENCY : DAILY;?
     Route: 047
     Dates: start: 20231012, end: 20231026

REACTIONS (3)
  - Instillation site irritation [None]
  - Eye infection [None]
  - Blindness [None]

NARRATIVE: CASE EVENT DATE: 20231012
